FAERS Safety Report 4515250-3 (Version None)
Quarter: 2004Q4

REPORT INFORMATION
  Report Type: 
  Country: None (occurrence: None)
  Receive Date: 20041126
  Receipt Date: 20041112
  Transmission Date: 20050328
  Serious: Yes (Hospitalization)
  Sender: FDA-Public Use
  Company Number: 210618

PATIENT
  Age: 37 Year
  Sex: Female
  Weight: 53 kg

DRUGS (4)
  1. HERCEPTIN [Suspect]
     Indication: BREAST CANCER
     Dosage: 8 MG/KG, SINGLE, INTRAVENOUS; 6 MG/KG, Q3W
     Route: 042
     Dates: start: 20040722, end: 20040722
  2. HERCEPTIN [Suspect]
     Indication: BREAST CANCER
     Dosage: 8 MG/KG, SINGLE, INTRAVENOUS; 6 MG/KG, Q3W
     Route: 042
     Dates: start: 20040811
  3. TAMOXIFEN CITRATE [Concomitant]
  4. CLEMASTINE (CLEMASTINE) [Concomitant]

REACTIONS (5)
  - ADNEXA UTERI CYST [None]
  - BREAST CANCER RECURRENT [None]
  - CHEST WALL MASS [None]
  - ENDOMETRIOSIS [None]
  - METASTASES TO LYMPH NODES [None]
